FAERS Safety Report 21448336 (Version 3)
Quarter: 2022Q4

REPORT INFORMATION
  Report Type: Spontaneous
  Country: FR (occurrence: FR)
  Receive Date: 20221013
  Receipt Date: 20221110
  Transmission Date: 20230112
  Serious: Yes (Hospitalization, Other)
  Sender: FDA-Public Use
  Company Number: FR-BRISTOL-MYERS SQUIBB COMPANY-2022-115324

PATIENT
  Age: 12 Year
  Sex: Male

DRUGS (7)
  1. AZACITIDINE [Suspect]
     Active Substance: AZACITIDINE
     Indication: Acute leukaemia
     Dosage: FREQUENCY- 1 DAY, ADMINISTERED FOR 7 DAYS IN THE CYCLE; WITH AUGMENTED DOSING SINCE 5TH CYCLE.
     Route: 065
  2. VENETOCLAX [Suspect]
     Active Substance: VENETOCLAX
     Indication: Acute leukaemia
     Dosage: FREQUENCY: 1 DAY, ADMINISTERED IN 28 DAYS CYCLES, WITH AUGMENTED DOSING SINCE 5TH CYCLE. ?INITIAL ES
     Route: 065
  3. VENETOCLAX [Suspect]
     Active Substance: VENETOCLAX
     Dosage: DOSE OF 100-400 MG/DAY FOR 3 DOSES.
     Route: 065
  4. IDARUBICIN [Concomitant]
     Active Substance: IDARUBICIN
     Indication: Acute biphenotypic leukaemia
     Dosage: UNK
  5. FLUDARABINE [Concomitant]
     Active Substance: FLUDARABINE PHOSPHATE
     Indication: Acute biphenotypic leukaemia
     Dosage: UNK
  6. GEMTUZUMAB OZOGAMICIN [Concomitant]
     Active Substance: GEMTUZUMAB OZOGAMICIN
     Indication: Acute biphenotypic leukaemia
  7. CYTARABINE [Concomitant]
     Active Substance: CYTARABINE
     Indication: Acute biphenotypic leukaemia
     Dosage: UNK

REACTIONS (2)
  - Bronchopulmonary aspergillosis [Recovered/Resolved]
  - Febrile neutropenia [Recovered/Resolved]
